FAERS Safety Report 9327960 (Version 1)
Quarter: 2013Q2

REPORT INFORMATION
  Report Type: Spontaneous
  Country: US (occurrence: US)
  Receive Date: 20130604
  Receipt Date: 20130604
  Transmission Date: 20140414
  Serious: Yes (Other)
  Sender: FDA-Public Use
  Company Number: US-SANOFI-AVENTIS-2012SA029340

PATIENT
  Sex: 0

DRUGS (3)
  1. LANTUS [Suspect]
     Route: 058
  2. NOVOLOG [Suspect]
     Dosage: BEFORE BED DOSE:45 UNIT(S)
     Route: 058
  3. NOVOLOG [Suspect]
     Dosage: MEALTIMES
     Route: 058

REACTIONS (2)
  - Hypoglycaemia [Unknown]
  - Wrong drug administered [Unknown]
